FAERS Safety Report 5592958-2 (Version None)
Quarter: 2008Q1

REPORT INFORMATION
  Report Type: 
  Country: None (occurrence: None)
  Receive Date: 20080116
  Receipt Date: 20080103
  Transmission Date: 20080703
  Serious: Yes (Hospitalization)
  Sender: FDA-Public Use
  Company Number: US-ELI_LILLY_AND_COMPANY-US200711006543

PATIENT
  Sex: Female

DRUGS (10)
  1. FORTEO [Suspect]
     Indication: OSTEOPOROSIS
     Dosage: UNK, UNK
     Dates: start: 20071001, end: 20071112
  2. TOPROL-XL [Concomitant]
     Indication: HYPERTENSION
  3. SYNTHROID [Concomitant]
     Indication: BASEDOW'S DISEASE
  4. NORVASC [Concomitant]
     Indication: HYPERTENSION
  5. EFFEXOR XR [Concomitant]
     Indication: ANXIETY
  6. MIRTAZON [Concomitant]
  7. LISINOPRIL [Concomitant]
     Indication: CARDIAC DISORDER
  8. PLAVIX [Concomitant]
     Indication: ANTIPLATELET THERAPY
  9. LUTEIN [Concomitant]
     Indication: EYE DISORDER
  10. CALCIUM GLUCONATE [Concomitant]
     Indication: SUPPLEMENTATION THERAPY
     Dosage: 600 MG, 2/D

REACTIONS (2)
  - POST PROCEDURAL COMPLICATION [None]
  - RED BLOOD CELL SEDIMENTATION RATE DECREASED [None]
